FAERS Safety Report 7617235-7 (Version None)
Quarter: 2011Q3

REPORT INFORMATION
  Report Type: 
  Country: None (occurrence: None)
  Receive Date: 20110718
  Receipt Date: 20110706
  Transmission Date: 20111222
  Serious: Yes (Other)
  Sender: FDA-Public Use
  Company Number: US-JNJFOC-20110702603

PATIENT
  Sex: Male

DRUGS (1)
  1. REMICADE [Suspect]
     Indication: ANKYLOSING SPONDYLITIS
     Dosage: ON REMICADE FOR YEARS
     Route: 042

REACTIONS (2)
  - DEMYELINATING POLYNEUROPATHY [None]
  - CERVICAL SPINAL STENOSIS [None]
